FAERS Safety Report 6550190-X (Version None)
Quarter: 2010Q1

REPORT INFORMATION
  Report Type: 
  Country: None (occurrence: None)
  Receive Date: 20100125
  Receipt Date: 20100111
  Transmission Date: 20100710
  Serious: Yes (Other)
  Sender: FDA-Public Use
  Company Number: US-PFIZER INC-2010007904

PATIENT
  Age: 48 Year
  Sex: Male
  Weight: 117.91 kg

DRUGS (7)
  1. GEODON [Suspect]
     Indication: BIPOLAR I DISORDER
     Dosage: 60 MG, 1X/DAY
     Dates: start: 20060517
  2. GEODON [Suspect]
     Indication: SCHIZOAFFECTIVE DISORDER
  3. DAPSONE [Concomitant]
     Indication: DERMATITIS HERPETIFORMIS
     Dosage: UNK
     Dates: start: 20010101
  4. KLONOPIN [Concomitant]
     Dosage: UNK
  5. PROVIGIL [Concomitant]
     Dosage: UNK
  6. PAXIL [Concomitant]
     Dosage: UNK
  7. DEPAKOTE [Concomitant]
     Dosage: UNK

REACTIONS (2)
  - COELIAC DISEASE [None]
  - DERMATITIS HERPETIFORMIS [None]
